FAERS Safety Report 8927099 (Version 1)
Quarter: 2012Q4

REPORT INFORMATION
  Report Type: 
  Country: IT (occurrence: IT)
  Receive Date: 20121127
  Receipt Date: 20121127
  Transmission Date: 20130627
  Serious: Yes (Hospitalization)
  Sender: FDA-Public Use
  Company Number: IT-TEVA-370473ISR

PATIENT
  Age: 67 Year
  Sex: Female

DRUGS (3)
  1. FLUOROURACILE [Suspect]
     Indication: BREAST CANCER
     Dosage: 1044 Milligram Daily;
     Route: 042
     Dates: start: 20120316, end: 20120629
  2. CYCLOPHOSPHAMIDE [Suspect]
     Indication: BREAST CANCER
     Route: 042
     Dates: start: 20120316, end: 20120629
  3. METOTREXATE [Suspect]
     Indication: BREAST CANCER
     Dosage: 70 Milligram Daily;
     Route: 042
     Dates: start: 20120316, end: 20120629

REACTIONS (2)
  - Abdominal pain upper [Recovered/Resolved]
  - Vomiting [Recovered/Resolved]
